FAERS Safety Report 15340568 (Version 1)
Quarter: 2018Q3

REPORT INFORMATION
  Report Type: Report from Study
  Country: US (occurrence: US)
  Receive Date: 20180831
  Receipt Date: 20180831
  Transmission Date: 20181010
  Serious: Yes (Hospitalization)
  Sender: FDA-Public Use
  Company Number: US-ACTELION-A-US2018-177931

PATIENT
  Age: 49 Year
  Sex: Female

DRUGS (1)
  1. OPSUMIT [Suspect]
     Active Substance: MACITENTAN
     Indication: PULMONARY ARTERIAL HYPERTENSION
     Dosage: 10 MG, QD
     Route: 048
     Dates: start: 20180713

REACTIONS (8)
  - Urinary tract infection [Unknown]
  - Fall [Unknown]
  - Blood creatinine increased [Unknown]
  - Wound infection [Unknown]
  - Mental status changes [Recovered/Resolved]
  - Wound closure [Unknown]
  - Neutropenia [Unknown]
  - Limb injury [Unknown]

NARRATIVE: CASE EVENT DATE: 20180715
